FAERS Safety Report 5956706-6 (Version None)
Quarter: 2008Q4

REPORT INFORMATION
  Report Type: 
  Country: None (occurrence: None)
  Receive Date: 20081118
  Receipt Date: 20081112
  Transmission Date: 20090506
  Serious: Yes (Death)
  Sender: FDA-Public Use
  Company Number: JP-ASTRAZENECA-2008AC02926

PATIENT
  Sex: Female
  Weight: 44 kg

DRUGS (3)
  1. ATENOLOL [Suspect]
  2. PILSICAINIDE [Suspect]
  3. ASPIRIN [Concomitant]

REACTIONS (4)
  - ARRHYTHMIA [None]
  - CARDIO-RESPIRATORY ARREST [None]
  - INTENTIONAL OVERDOSE [None]
  - THERAPEUTIC AGENT TOXICITY [None]
